FAERS Safety Report 25507057 (Version 2)
Quarter: 2025Q3

REPORT INFORMATION
  Report Type: Spontaneous
  Country: JP (occurrence: JP)
  Receive Date: 20250702
  Receipt Date: 20250825
  Transmission Date: 20251021
  Serious: No
  Sender: AMGEN
  Company Number: JP-KYOWAKIRIN-2025KK012312

PATIENT
  Age: 77 Year
  Sex: Male

DRUGS (1)
  1. DARBEPOETIN ALFA [Suspect]
     Active Substance: DARBEPOETIN ALFA
     Indication: Nephrogenic anaemia
     Route: 058
     Dates: start: 20250501, end: 20250501

REACTIONS (1)
  - No adverse event [Unknown]
